FAERS Safety Report 4974027-5 (Version None)
Quarter: 2006Q2

REPORT INFORMATION
  Report Type: 
  Country: None (occurrence: None)
  Receive Date: 20060410
  Receipt Date: 20060329
  Transmission Date: 20061013
  Serious: Yes (Other)
  Sender: FDA-Public Use
  Company Number: 2006011649

PATIENT
  Age: 77 Year
  Sex: Male
  Weight: 97.0698 kg

DRUGS (20)
  1. NEURONTIN [Suspect]
     Indication: PAIN
     Dosage: 900 MG (300 MG, 3 IN 1 D), ORAL
     Route: 048
     Dates: start: 20010101, end: 20010101
  2. DARVOCET [Suspect]
     Indication: BACK PAIN
     Dosage: 100/650
  3. HYDROCODONE BITARTRATE [Suspect]
     Indication: ILL-DEFINED DISORDER
  4. CARDIAC THERAPY (CARDIAC THERAPY) [Concomitant]
  5. LIPITOR [Concomitant]
  6. LANOXIN [Concomitant]
  7. DIAZEPAM (DIGOXIN) [Concomitant]
  8. METOPROLOL (METOPROLOL) [Concomitant]
  9. HYDROCODONE BITARTRATE + ACETAMINOPHEN [Concomitant]
  10. PLAVIX [Concomitant]
  11. LASIX [Concomitant]
  12. VALIUM [Concomitant]
  13. CALCIUM (CALCIUM) [Concomitant]
  14. ECOTRIN (ACETYLSALICYLIC ACID) [Concomitant]
  15. ROBITUSSIN-PE (ETHANOL, GUAIFENESIN, PSEUDOEPHEDRINE HYDROCHLORIDE) [Concomitant]
  16. ANEXSIA (HYDROCODONE BITARTRATE, PARACETAMOL) [Concomitant]
  17. VITAMIN E [Concomitant]
  18. AMILORIDE HYDROCHLORIDE (AMILORIDE HYDROCHLORIDE) [Concomitant]
  19. AFRIN NOSE DROPS (OXYMETAZOLINE HYDROCHLORIDE) [Concomitant]
  20. PRENATAL VITAMINS (ASCORBIC ACID, BIOTIN, MINERALS NOS, NICOTINIC ACID [Concomitant]

REACTIONS (32)
  - AREFLEXIA [None]
  - ARTERIAL DISORDER [None]
  - ARTHRALGIA [None]
  - BACK PAIN [None]
  - BLINDNESS [None]
  - BUTTOCK PAIN [None]
  - DEPRESSION [None]
  - DRUG HYPERSENSITIVITY [None]
  - DYSPHAGIA [None]
  - FALL [None]
  - FEELING ABNORMAL [None]
  - FOOT DEFORMITY [None]
  - GAIT DISTURBANCE [None]
  - HEPATOCELLULAR DAMAGE [None]
  - HYPOAESTHESIA [None]
  - LIVER DISORDER [None]
  - LIVING IN RESIDENTIAL INSTITUTION [None]
  - MUSCLE ATROPHY [None]
  - MUSCLE DISORDER [None]
  - NERVE CONDUCTION STUDIES ABNORMAL [None]
  - PAIN IN EXTREMITY [None]
  - PARAESTHESIA [None]
  - PERIPHERAL MOTOR NEUROPATHY [None]
  - PERIPHERAL SENSORY NEUROPATHY [None]
  - RENAL DISORDER [None]
  - SENSORY DISTURBANCE [None]
  - SPEECH DISORDER [None]
  - SPINAL LAMINECTOMY [None]
  - UNEVALUABLE EVENT [None]
  - VISUAL DISTURBANCE [None]
  - WALKING AID USER [None]
  - WHEELCHAIR USER [None]
